FAERS Safety Report 9652031 (Version 1)
Quarter: 2013Q4

REPORT INFORMATION
  Report Type: Spontaneous
  Country: US (occurrence: None)
  Receive Date: 20131025
  Receipt Date: 20131025
  Transmission Date: 20140711
  Serious: No
  Sender: FDA-Public Use
  Company Number: None

PATIENT
  Sex: 0

DRUGS (2)
  1. CIPROFLOXACIN [Suspect]
     Indication: GASTROENTERITIS
     Route: 048
     Dates: start: 20130908, end: 20130909
  2. LOPERAMIDE [Suspect]
     Indication: GASTROENTERITIS
     Route: 048
     Dates: start: 20130908

REACTIONS (4)
  - Rash [None]
  - Throat tightness [None]
  - Urticaria [None]
  - Pruritus [None]
